FAERS Safety Report 5211703-3 (Version None)
Quarter: 2007Q1

REPORT INFORMATION
  Report Type: 
  Country: None (occurrence: None)
  Receive Date: 20070118
  Receipt Date: 20070116
  Transmission Date: 20070707
  Serious: Yes (Hospitalization)
  Sender: FDA-Public Use
  Company Number: GB-BRISTOL-MYERS SQUIBB COMPANY-13644729

PATIENT
  Age: 34 Year
  Sex: Female
  Weight: 55 kg

DRUGS (7)
  1. PACLITAXEL [Suspect]
     Dates: start: 20070103, end: 20070103
  2. GEMCITABINE [Suspect]
     Dates: start: 20070103, end: 20070103
  3. RANITIDINE [Concomitant]
     Indication: DYSPHAGIA
     Route: 042
     Dates: start: 20070103, end: 20070103
  4. GRANISETRON [Concomitant]
     Indication: NAUSEA
     Route: 048
     Dates: start: 20070103, end: 20070105
  5. DOCUSATE [Concomitant]
     Indication: CONSTIPATION
     Route: 048
     Dates: start: 20070103, end: 20070110
  6. NEULASTA [Concomitant]
     Indication: NEUTROPENIA
     Route: 058
     Dates: start: 20070104, end: 20070104
  7. DEXAMETHASONE [Concomitant]
     Route: 048
     Dates: start: 20070103, end: 20070103

REACTIONS (4)
  - CONSTIPATION [None]
  - NEUTROPENIA [None]
  - PAIN [None]
  - PYREXIA [None]
